FAERS Safety Report 13266441 (Version 4)
Quarter: 2019Q2

REPORT INFORMATION
  Report Type: Spontaneous
  Country: US (occurrence: US)
  Receive Date: 20170223
  Receipt Date: 20190417
  Transmission Date: 20190711
  Serious: Yes (Death, Other)
  Sender: FDA-Public Use
  Company Number: US-VIFOR (INTERNATIONAL) INC.-VIT-2017-01680

PATIENT
  Age: 86 Year
  Sex: Male

DRUGS (11)
  1. PRAMIPEXOLE. [Concomitant]
     Active Substance: PRAMIPEXOLE
  2. GABAPENTIN. [Concomitant]
     Active Substance: GABAPENTIN
  3. SYNTHROID [Concomitant]
     Active Substance: LEVOTHYROXINE SODIUM
  4. VITAMIN D3 [Concomitant]
     Active Substance: CHOLECALCIFEROL
  5. HYDROXY PAM [Concomitant]
  6. VELTASSA [Suspect]
     Active Substance: PATIROMER
     Indication: HYPERKALAEMIA
     Route: 048
  7. CARVEDILOL. [Concomitant]
     Active Substance: CARVEDILOL
  8. RANITIDINE. [Concomitant]
     Active Substance: RANITIDINE
  9. HYDRALAZINE [Concomitant]
     Active Substance: HYDRALAZINE HYDROCHLORIDE
  10. BUMEX [Concomitant]
     Active Substance: BUMETANIDE
  11. KIONEX [Concomitant]
     Active Substance: SODIUM POLYSTYRENE SULFONATE

REACTIONS (3)
  - Diarrhoea [Unknown]
  - Death [Fatal]
  - Hernia [Unknown]

NARRATIVE: CASE EVENT DATE: 20190306
